FAERS Safety Report 4838206-X (Version None)
Quarter: 2005Q4

REPORT INFORMATION
  Report Type: 
  Country: None (occurrence: None)
  Receive Date: 20051123
  Receipt Date: 20051110
  Transmission Date: 20060501
  Serious: Yes (Other)
  Sender: FDA-Public Use
  Company Number: 2005BI020838

PATIENT
  Age: 64 Year
  Sex: Male

DRUGS (5)
  1. AMEVIVE [Suspect]
     Indication: PSORIASIS
     Dosage: 15 MG; QW; IM; 15 MG; QW; IM
     Route: 030
     Dates: start: 20031223, end: 20040308
  2. AMEVIVE [Suspect]
     Indication: PSORIASIS
     Dosage: 15 MG; QW; IM; 15 MG; QW; IM
     Route: 030
     Dates: start: 20040607, end: 20040826
  3. ZOCOR [Concomitant]
  4. ASPIRIN [Concomitant]
  5. TYLENOL [Concomitant]

REACTIONS (1)
  - NON-HODGKIN'S LYMPHOMA [None]
